FAERS Safety Report 25521377 (Version 2)
Quarter: 2025Q4

REPORT INFORMATION
  Report Type: Report from Study
  Country: US (occurrence: US)
  Receive Date: 20250705
  Receipt Date: 20251019
  Transmission Date: 20260117
  Serious: No
  Sender: TRAVERE THERAPEUTICS
  Company Number: US-TRAVERE-2025TVT00949

PATIENT
  Age: 52 Year
  Sex: Male

DRUGS (9)
  1. FILSPARI [Suspect]
     Active Substance: SPARSENTAN
     Indication: IgA nephropathy
     Route: 048
     Dates: start: 202504
  2. JARDIANCE [Concomitant]
     Active Substance: EMPAGLIFLOZIN
  3. ATORVASTATIN [Concomitant]
     Active Substance: ATORVASTATIN
  4. ZOLPIDEM [Concomitant]
     Active Substance: ZOLPIDEM TARTRATE
  5. PREGABALIN [Concomitant]
     Active Substance: PREGABALIN
  6. VITAMIN D3 [Concomitant]
     Active Substance: CHOLECALCIFEROL
  7. VITAMIN B COMPLEX WITH C [Concomitant]
     Active Substance: ASCORBIC ACID\CALCIUM PANTOTHENATE\CYANOCOBALAMIN\NIACINAMIDE\PYRIDOXINE HYDROCHLORIDE\RIBOFLAVIN\TH
  8. GLUCOSAMINE [Concomitant]
     Active Substance: GLUCOSAMINE
  9. OXYCODONE [Concomitant]
     Active Substance: OXYCODONE

REACTIONS (9)
  - Urobilinogen urine [Unknown]
  - Glucose urine present [Unknown]
  - Specific gravity urine abnormal [Unknown]
  - Blood urea increased [Unknown]
  - Blood sodium decreased [Unknown]
  - Blood creatinine increased [Unknown]
  - Blood glucose increased [Unknown]
  - Anion gap decreased [Unknown]
  - Pain in extremity [None]

NARRATIVE: CASE EVENT DATE: 20250421
